FAERS Safety Report 12772543 (Version 1)
Quarter: 2016Q3

REPORT INFORMATION
  Report Type: Spontaneous
  Country: US (occurrence: US)
  Receive Date: 20160922
  Receipt Date: 20160922
  Transmission Date: 20161109
  Serious: Yes (Hospitalization)
  Sender: FDA-Public Use
  Company Number: US-BAYER-2016-181342

PATIENT
  Age: 28 Year
  Sex: Female

DRUGS (4)
  1. TORADOL [Concomitant]
     Active Substance: KETOROLAC TROMETHAMINE
     Indication: PAIN
  2. YAZ [Suspect]
     Active Substance: DROSPIRENONE\ETHINYL ESTRADIOL
     Route: 048
  3. BUPROPION. [Concomitant]
     Active Substance: BUPROPION
     Indication: DEPRESSION
     Dosage: 150 MG, UNK
  4. DARVOCET [Concomitant]
     Active Substance: ACETAMINOPHEN\PROPOXYPHENE HYDROCHLORIDE

REACTIONS (1)
  - Pulmonary embolism [None]

NARRATIVE: CASE EVENT DATE: 20091014
